FAERS Safety Report 14689334 (Version 2)
Quarter: 2018Q2

REPORT INFORMATION
  Report Type: Report from Study
  Country: US (occurrence: US)
  Receive Date: 20180328
  Receipt Date: 20180427
  Transmission Date: 20180711
  Serious: Yes (Hospitalization)
  Sender: FDA-Public Use
  Company Number: US-ASTELLAS-2018US014627

PATIENT
  Age: 82 Year
  Sex: Male

DRUGS (1)
  1. ENZALUTAMIDE [Suspect]
     Active Substance: ENZALUTAMIDE
     Indication: PROSTATE CANCER
     Dosage: UNK UNK, UNKNOWN FREQ.
     Route: 065

REACTIONS (6)
  - Incoherent [Unknown]
  - Dysarthria [Unknown]
  - Delusion [Unknown]
  - Asthenia [Unknown]
  - Pyrexia [Unknown]
  - Bedridden [Unknown]

NARRATIVE: CASE EVENT DATE: 20180211
